FAERS Safety Report 9762636 (Version 1)
Quarter: 2013Q4

REPORT INFORMATION
  Report Type: Spontaneous
  Country: US (occurrence: US)
  Receive Date: 20131216
  Receipt Date: 20131216
  Transmission Date: 20140711
  Serious: No
  Sender: FDA-Public Use
  Company Number: US-BIOGENIDEC-2013BI102601

PATIENT
  Age: 33 Year
  Sex: Male

DRUGS (8)
  1. TECFIDERA [Suspect]
     Indication: MULTIPLE SCLEROSIS
     Dates: start: 201307
  2. PERCOCET [Concomitant]
  3. IBUPROFEN [Concomitant]
  4. TEGRETOL-XR [Concomitant]
  5. LIBRAX [Concomitant]
  6. LOMOTIL [Concomitant]
  7. CELEXA [Concomitant]
  8. REBIF [Concomitant]

REACTIONS (1)
  - Flushing [Unknown]
